FAERS Safety Report 19707287 (Version 2)
Quarter: 2021Q3

REPORT INFORMATION
  Report Type: Spontaneous
  Country: GB (occurrence: GB)
  Receive Date: 20210817
  Receipt Date: 20210826
  Transmission Date: 20211014
  Serious: No
  Sender: FDA-Public Use
  Company Number: GB-PFIZER INC-2021574951

PATIENT
  Sex: Female

DRUGS (1)
  1. SOMAVERT [Suspect]
     Active Substance: PEGVISOMANT
     Dosage: UNK
     Route: 058
     Dates: start: 2017

REACTIONS (4)
  - Device leakage [Unknown]
  - Needle issue [Unknown]
  - Injection site bruising [Unknown]
  - Drug dose omission by device [Unknown]
